FAERS Safety Report 9978472 (Version 1)
Quarter: 2014Q1

REPORT INFORMATION
  Report Type: Spontaneous
  Country: US (occurrence: US)
  Receive Date: 20140306
  Receipt Date: 20140306
  Transmission Date: 20141002
  Serious: No
  Sender: FDA-Public Use
  Company Number: US-ABBVIE-13P-163-1173217-00

PATIENT
  Age: 65 Year
  Sex: Female
  Weight: 79.45 kg

DRUGS (22)
  1. HUMIRA [Suspect]
     Indication: CROHN^S DISEASE
     Dosage: LOADING DOSE
     Dates: start: 20131021, end: 20131021
  2. HUMIRA [Suspect]
     Dosage: SECOND DOSE
     Dates: start: 20131104, end: 20131104
  3. HUMIRA [Suspect]
     Dates: start: 20131118
  4. NEXIUM [Concomitant]
     Indication: GASTROOESOPHAGEAL REFLUX DISEASE
  5. ROBINAL FORTE [Concomitant]
     Indication: GASTROOESOPHAGEAL REFLUX DISEASE
  6. SIMVASTATIN [Concomitant]
     Indication: BLOOD CHOLESTEROL INCREASED
  7. FENOFIBRATE [Concomitant]
     Indication: BLOOD CHOLESTEROL INCREASED
  8. VASOTEC [Concomitant]
     Indication: HYPERTENSION
  9. HYDROCHLOROTHIAZIDE [Concomitant]
     Indication: HYPERTENSION
  10. NORVASC [Concomitant]
     Indication: HYPERTENSION
  11. AMITRIPTYLINE [Concomitant]
     Indication: ANTIDEPRESSANT THERAPY
  12. AMITRIPTYLINE [Concomitant]
     Indication: ANXIETY
  13. ZOLOFT [Concomitant]
     Indication: ANTIDEPRESSANT THERAPY
  14. BUSPIRONE [Concomitant]
     Indication: ANTIDEPRESSANT THERAPY
  15. BACLOFEN [Concomitant]
     Indication: FIBROMYALGIA
  16. TRAZODONE [Concomitant]
     Indication: FIBROMYALGIA
  17. ARMOUR THYROID [Concomitant]
     Indication: HYPOTHYROIDISM
  18. METFORMIN [Concomitant]
     Indication: DIABETES MELLITUS
  19. LANTUS [Concomitant]
     Indication: DIABETES MELLITUS
  20. NOVOLOG [Concomitant]
     Indication: DIABETES MELLITUS
  21. VITAMIN D3 [Concomitant]
     Indication: VITAMIN SUPPLEMENTATION
  22. VITAMIN B12 [Concomitant]
     Indication: VITAMIN SUPPLEMENTATION

REACTIONS (1)
  - Scleritis [Recovering/Resolving]
